FAERS Safety Report 10856147 (Version 1)
Quarter: 2015Q1

REPORT INFORMATION
  Report Type: Report from Study
  Country: US (occurrence: US)
  Receive Date: 20150223
  Receipt Date: 20150223
  Transmission Date: 20150721
  Serious: Yes (Other)
  Sender: FDA-Public Use
  Company Number: PHEH2014US005699

PATIENT
  Sex: Female

DRUGS (2)
  1. SANDIMMUNE [Suspect]
     Active Substance: CYCLOSPORINE
     Indication: HEART TRANSPLANT
     Dosage: 50 MG, TWICE DAILY
     Route: 048
  2. SANDIMMUNE [Suspect]
     Active Substance: CYCLOSPORINE
     Dosage: 50 MG, TWICE DAILY
     Route: 048

REACTIONS (5)
  - Neoplasm malignant [Unknown]
  - Mental disorder [Unknown]
  - Logorrhoea [Unknown]
  - Cardiac arrest [Unknown]
  - Gout [Unknown]
